FAERS Safety Report 16495037 (Version 2)
Quarter: 2020Q3

REPORT INFORMATION
  Report Type: Report from Study
  Country: US (occurrence: US)
  Receive Date: 20190628
  Receipt Date: 20200701
  Transmission Date: 20201102
  Serious: Yes (Hospitalization)
  Sender: FDA-Public Use
  Company Number: US-ALEXION PHARMACEUTICALS INC.-A201909602

PATIENT
  Sex: Male

DRUGS (2)
  1. ULTOMIRIS [Suspect]
     Active Substance: RAVULIZUMAB-CWVZ
     Indication: PAROXYSMAL NOCTURNAL HAEMOGLOBINURIA
     Dosage: UNK
     Route: 065
  2. SOLIRIS [Suspect]
     Active Substance: ECULIZUMAB
     Indication: PRODUCT USED FOR UNKNOWN INDICATION
     Dosage: UNK
     Route: 065

REACTIONS (10)
  - Headache [Unknown]
  - Jaundice [Unknown]
  - Vomiting [Unknown]
  - Chromaturia [Unknown]
  - Nausea [Unknown]
  - Cholelithiasis [Unknown]
  - Pain [Unknown]
  - Ocular icterus [Unknown]
  - Stress [Unknown]
  - Abdominal pain [Unknown]
